FAERS Safety Report 4626341-0 (Version None)
Quarter: 2005Q2

REPORT INFORMATION
  Report Type: 
  Country: None (occurrence: None)
  Receive Date: 20050404
  Receipt Date: 20050330
  Transmission Date: 20051028
  Serious: Yes (Hospitalization)
  Sender: FDA-Public Use
  Company Number: US-GLAXOSMITHKLINE-A0551961A

PATIENT
  Age: 58 Year
  Sex: Male
  Weight: 69.3 kg

DRUGS (1)
  1. TOPOTECAN [Suspect]
     Dosage: 7.8MG CYCLIC
     Route: 042
     Dates: start: 20050216

REACTIONS (4)
  - ANAEMIA [None]
  - DEHYDRATION [None]
  - FATIGUE [None]
  - WEIGHT DECREASED [None]
